FAERS Safety Report 9961714 (Version 2)
Quarter: 2014Q1

REPORT INFORMATION
  Report Type: Report from Study
  Country: US (occurrence: US)
  Receive Date: 20140305
  Receipt Date: 20140305
  Transmission Date: 20141002
  Serious: Yes (Other)
  Sender: FDA-Public Use
  Company Number: US-ABBVIE-13P-163-1113144-00

PATIENT
  Age: 54 Year
  Sex: Female

DRUGS (18)
  1. HUMIRA [Suspect]
     Indication: PSORIASIS
     Dates: start: 20130111, end: 20130610
  2. TRIAMCINOLONE [Suspect]
     Indication: PSORIASIS
  3. ACETONIDE OINTMENT [Suspect]
     Indication: PSORIASIS
  4. OMEPRAZOL [Concomitant]
     Indication: GASTROOESOPHAGEAL REFLUX DISEASE
  5. SIMVASTATIN [Concomitant]
     Indication: BLOOD CHOLESTEROL
     Dosage: DAILY
  6. LORTAB [Concomitant]
     Indication: PAIN
  7. HYDROXYZINE [Concomitant]
     Indication: PRURITUS
  8. PAXIL [Concomitant]
     Indication: DEPRESSION
  9. SOMA [Concomitant]
     Indication: HYPOTONIA
  10. PHENERGAN [Concomitant]
     Indication: NAUSEA
  11. FUROSEMIDE [Concomitant]
     Indication: FLUID RETENTION
  12. FIORICET [Concomitant]
     Indication: MIGRAINE
     Dosage: 50/325/40MG
  13. GABAPENTIN [Concomitant]
     Indication: INFLAMMATION
  14. GABAPENTIN [Concomitant]
     Indication: PAIN
  15. DIAZEPAM [Concomitant]
     Indication: NERVOUSNESS
  16. LISINOPRIL [Concomitant]
     Indication: BLOOD PRESSURE
  17. POTASSIUM [Concomitant]
     Indication: PRODUCT USED FOR UNKNOWN INDICATION
  18. MAGNESIUM [Concomitant]
     Indication: PRODUCT USED FOR UNKNOWN INDICATION

REACTIONS (4)
  - Knee operation [Recovered/Resolved]
  - Arthralgia [Unknown]
  - Pain in extremity [Unknown]
  - Alopecia [Unknown]
